FAERS Safety Report 7522624-5 (Version None)
Quarter: 2011Q2

REPORT INFORMATION
  Report Type: 
  Country: None (occurrence: None)
  Receive Date: 20110603
  Receipt Date: 20110601
  Transmission Date: 20111010
  Serious: Yes (Other)
  Sender: FDA-Public Use
  Company Number: FR-AMGEN-FRACT2011022718

PATIENT
  Age: 72 Year

DRUGS (1)
  1. DENOSUMAB [Suspect]
     Indication: PROSTATE CANCER
     Dates: start: 20080124, end: 20100930

REACTIONS (1)
  - LOOSE TOOTH [None]
